FAERS Safety Report 5621787-6 (Version None)
Quarter: 2008Q1

REPORT INFORMATION
  Report Type: 
  Country: None (occurrence: None)
  Receive Date: 20080211
  Receipt Date: 20080207
  Transmission Date: 20080703
  Serious: Yes (Death, Hospitalization, Other)
  Sender: FDA-Public Use
  Company Number: PHHY2008JP01458

PATIENT
  Age: 86 Year
  Sex: Female

DRUGS (6)
  1. VOLTAREN [Suspect]
     Indication: ANALGESIC THERAPY
     Dosage: 50 MG/DAY
     Route: 054
     Dates: start: 20080121, end: 20080125
  2. PL GRAN. [Suspect]
     Indication: PYREXIA
     Dosage: 4 MG/D
     Route: 048
     Dates: start: 20080118, end: 20080120
  3. WARFARIN SODIUM [Suspect]
     Indication: CARDIAC VALVE DISEASE
     Dosage: 2.5 MG/D
     Route: 048
  4. DIGOXIN [Concomitant]
     Indication: CARDIAC VALVE DISEASE
     Dosage: 0.125 MG, UNK
     Route: 048
  5. LASIX [Concomitant]
     Dosage: 40 MG/D
     Route: 048
     Dates: start: 20080114
  6. LBRACC [Suspect]

REACTIONS (8)
  - BLOOD CREATININE INCREASED [None]
  - CONTUSION [None]
  - FALL [None]
  - GASTROINTESTINAL HAEMORRHAGE [None]
  - MELAENA [None]
  - MOUTH HAEMORRHAGE [None]
  - MULTI-ORGAN FAILURE [None]
  - RENAL FAILURE ACUTE [None]
